FAERS Safety Report 7292792-1 (Version None)
Quarter: 2011Q1

REPORT INFORMATION
  Report Type: 
  Country: None (occurrence: None)
  Receive Date: 20110210
  Receipt Date: 20110210
  Transmission Date: 20110831
  Serious: No
  Sender: FDA-Public Use
  Company Number: None

PATIENT
  Age: 62 Year
  Sex: Female
  Weight: 61.2356 kg

DRUGS (5)
  1. VERAPAMIL [Concomitant]
  2. SIMVASTATIN [Concomitant]
  3. NITROFUR MAC [Concomitant]
  4. ALPRAZOLAM [Concomitant]
  5. ATROVENT HFA [Suspect]
     Indication: CHRONIC OBSTRUCTIVE PULMONARY DISEASE
     Dosage: IN HALE TWO PUFFS BY MOUTH 4 TIMES DAILY
     Route: 055
     Dates: start: 20100826, end: 20100926

REACTIONS (1)
  - RHINORRHOEA [None]
